FAERS Safety Report 7905801-0 (Version None)
Quarter: 2011Q4

REPORT INFORMATION
  Report Type: 
  Country: None (occurrence: None)
  Receive Date: 20111108
  Receipt Date: 20111027
  Transmission Date: 20120403
  Serious: Yes (Other)
  Sender: FDA-Public Use
  Company Number: CIO11010988

PATIENT
  Age: 59 Year
  Sex: Female

DRUGS (4)
  1. METAMUCIL-2 [Suspect]
     Dosage: 1TBSP, 1 ONLY, ORAL
     Route: 048
     Dates: start: 20110612, end: 20110612
  2. PREMARIN [Concomitant]
  3. VITAMIN E  /00110501/ (TOCOPHEROL) [Concomitant]
  4. B COMPLEX /0175340 (VITAMIN-B-KOMPLEX STANDARD) [Concomitant]

REACTIONS (12)
  - CHOKING SENSATION [None]
  - CHOKING [None]
  - ANAPHYLACTIC REACTION [None]
  - PHARYNGEAL OEDEMA [None]
  - WHEEZING [None]
  - INCORRECT DOSE ADMINISTERED [None]
  - DYSPHAGIA [None]
  - RESPIRATORY DISTRESS [None]
  - DISCOMFORT [None]
  - DYSPNOEA [None]
  - NAUSEA [None]
  - VOMITING [None]
